FAERS Safety Report 20084091 (Version 1)
Quarter: 2021Q4

REPORT INFORMATION
  Report Type: Spontaneous
  Country: US (occurrence: US)
  Receive Date: 20211118
  Receipt Date: 20211118
  Transmission Date: 20220303
  Serious: Yes (Hospitalization, Other)
  Sender: FDA-Public Use
  Company Number: US-BoehringerIngelheim-2021-BI-138464

PATIENT
  Sex: Female

DRUGS (1)
  1. SPIRIVA RESPIMAT [Suspect]
     Active Substance: TIOTROPIUM BROMIDE
     Indication: Chronic obstructive pulmonary disease
     Dosage: 2.5MCG 2 SPRAYS A DAY
     Route: 055
     Dates: start: 2011

REACTIONS (6)
  - Lung neoplasm malignant [Not Recovered/Not Resolved]
  - Heart rate abnormal [Recovered/Resolved]
  - Dyspnoea [Recovered/Resolved]
  - Atrial fibrillation [Not Recovered/Not Resolved]
  - Asthenia [Not Recovered/Not Resolved]
  - Feeling abnormal [Not Recovered/Not Resolved]

NARRATIVE: CASE EVENT DATE: 20180201
